FAERS Safety Report 4313062-7 (Version None)
Quarter: 2004Q1

REPORT INFORMATION
  Report Type: 
  Country: None (occurrence: None)
  Receive Date: 20040304
  Receipt Date: 20040217
  Transmission Date: 20041129
  Serious: Yes (Other)
  Sender: FDA-Public Use
  Company Number: 188330

PATIENT
  Sex: Female

DRUGS (1)
  1. AVONEX [Suspect]
     Indication: MULTIPLE SCLEROSIS

REACTIONS (14)
  - ASTHMA [None]
  - BARRETT'S OESOPHAGUS [None]
  - BLADDER DISORDER [None]
  - BLOOD PRESSURE INCREASED [None]
  - BRONCHITIS CHRONIC [None]
  - EMPHYSEMA [None]
  - GASTROINTESTINAL DISORDER [None]
  - JUVENILE ARTHRITIS [None]
  - MUSCULAR WEAKNESS [None]
  - NARCOLEPSY [None]
  - NASOPHARYNGEAL DISORDER [None]
  - OESOPHAGEAL CARCINOMA [None]
  - RHEUMATOID ARTHRITIS [None]
  - SLEEP APNOEA SYNDROME [None]
